FAERS Safety Report 7769087-2 (Version None)
Quarter: 2011Q3

REPORT INFORMATION
  Report Type: 
  Country: None (occurrence: None)
  Receive Date: 20110922
  Receipt Date: 20100826
  Transmission Date: 20111222
  Serious: Yes (Hospitalization)
  Sender: FDA-Public Use
  Company Number: US-ASTRAZENECA-2009UW00899

PATIENT
  Age: 636 Month
  Sex: Female

DRUGS (12)
  1. SEROQUEL [Suspect]
     Indication: ANXIETY
     Route: 048
     Dates: start: 20040601, end: 20050701
  2. SEROQUEL [Suspect]
     Indication: DEPRESSION
     Route: 048
     Dates: start: 20040601, end: 20050701
  3. GEODON [Concomitant]
     Indication: PSYCHOTIC DISORDER
     Dates: start: 20050730
  4. SEROQUEL [Suspect]
     Route: 048
     Dates: start: 20040309, end: 20050730
  5. DEPAKOTE [Concomitant]
     Dates: start: 20050726
  6. INDERAL [Concomitant]
     Dosage: 20 MG2 BID
     Dates: start: 20040309
  7. LEXAPRO [Concomitant]
     Dates: start: 20050726
  8. SEROQUEL [Suspect]
     Route: 048
     Dates: start: 20040309, end: 20050730
  9. ZYPREXA [Concomitant]
     Dates: start: 20040309
  10. SEROQUEL [Suspect]
     Indication: HALLUCINATION, AUDITORY
     Route: 048
     Dates: start: 20040601, end: 20050701
  11. SEROQUEL [Suspect]
     Route: 048
     Dates: start: 20040309, end: 20050730
  12. RESTORIL [Concomitant]
     Indication: INSOMNIA
     Dates: start: 20050730

REACTIONS (3)
  - HYPERGLYCAEMIA [None]
  - TYPE 2 DIABETES MELLITUS [None]
  - DIABETES MELLITUS [None]
